FAERS Safety Report 8905795 (Version 2)
Quarter: 2012Q4

REPORT INFORMATION
  Report Type: 
  Country: US (occurrence: US)
  Receive Date: 20121109
  Receipt Date: 20121129
  Transmission Date: 20130627
  Serious: Yes (Death, Hospitalization)
  Sender: FDA-Public Use
  Company Number: US-BAXTER-2012BAX023430

PATIENT
  Age: 57 Year
  Sex: Female

DRUGS (1)
  1. DIANEAL LOW CALCIUM [Suspect]
     Indication: PERITONEAL DIALYSIS
     Route: 033
     Dates: end: 20121105

REACTIONS (4)
  - Chronic gastrointestinal bleeding [Fatal]
  - Chest pain [Recovering/Resolving]
  - Haemorrhagic anaemia [Recovering/Resolving]
  - Haematemesis [Unknown]
